FAERS Safety Report 7218388-5 (Version None)
Quarter: 2011Q1

REPORT INFORMATION
  Report Type: 
  Country: None (occurrence: None)
  Receive Date: 20110110
  Receipt Date: 20110110
  Transmission Date: 20110831
  Serious: Yes (Death)
  Sender: FDA-Public Use
  Company Number: US-ROXANE LABORATORIES, INC.-2011-RO-00042RO

PATIENT
  Sex: Female

DRUGS (2)
  1. ENBREL [Suspect]
     Indication: RHEUMATOID ARTHRITIS
     Route: 058
     Dates: start: 19990501, end: 20030710
  2. CYCLOPHOSPHAMIDE [Suspect]

REACTIONS (2)
  - BLADDER CANCER [None]
  - METASTATIC CARCINOMA OF THE BLADDER [None]
